FAERS Safety Report 11564902 (Version 3)
Quarter: 2016Q1

REPORT INFORMATION
  Report Type: Report from Study
  Country: PT (occurrence: PT)
  Receive Date: 20150928
  Receipt Date: 20160111
  Transmission Date: 20160525
  Serious: Yes (Death, Congenital Anomaly)
  Sender: FDA-Public Use
  Company Number: PT-ABBVIE-15P-130-1452682-00

PATIENT

DRUGS (1)
  1. HUMIRA [Suspect]
     Active Substance: ADALIMUMAB
     Indication: MATERNAL EXPOSURE TIMING UNSPECIFIED
     Route: 064

REACTIONS (3)
  - Abortion spontaneous [Fatal]
  - Foetal exposure during pregnancy [Unknown]
  - Foetal growth restriction [Unknown]
